FAERS Safety Report 19836583 (Version 1)
Quarter: 2021Q3

REPORT INFORMATION
  Report Type: Spontaneous
  Country: US (occurrence: US)
  Receive Date: 20210915
  Receipt Date: 20210915
  Transmission Date: 20211014
  Serious: No
  Sender: FDA-Public Use
  Company Number: US-BIOHAVEN PHARMACEUTICALS-2021BHV00729

PATIENT
  Age: 58 Year
  Sex: Female

DRUGS (3)
  1. NURTEC ODT [Suspect]
     Active Substance: RIMEGEPANT SULFATE
     Indication: HEADACHE
     Dosage: UNK UNK, EVERY 48 HOURS, EVEERY OTHER DAY
     Dates: start: 20210524, end: 20210601
  2. METHOTREXATE. [Concomitant]
     Active Substance: METHOTREXATE
     Dosage: UNK, 1X/WEEK
  3. AJOVY [Concomitant]
     Active Substance: FREMANEZUMAB-VFRM

REACTIONS (4)
  - Tongue disorder [Unknown]
  - Lip disorder [Unknown]
  - Mouth swelling [Unknown]
  - Gingival disorder [Unknown]

NARRATIVE: CASE EVENT DATE: 20210601
